FAERS Safety Report 6367755-0 (Version None)
Quarter: 2009Q3

REPORT INFORMATION
  Report Type: 
  Country: None (occurrence: None)
  Receive Date: 20090921
  Receipt Date: 20090908
  Transmission Date: 20100115
  Serious: Yes (Other)
  Sender: FDA-Public Use
  Company Number: CH-ELI_LILLY_AND_COMPANY-CH200908005160

PATIENT
  Age: 52 Year
  Sex: Female
  Weight: 88 kg

DRUGS (6)
  1. CYMBALTA [Suspect]
     Indication: DEPRESSION
     Dosage: 30 MG, DAILY (1/D)
     Route: 048
     Dates: start: 20080916
  2. APROVEL [Concomitant]
     Indication: HYPERTENSION
     Dosage: 150 MG, DAILY (1/D)
     Route: 048
     Dates: start: 20080101
  3. EUTHYROX [Concomitant]
     Indication: HYPOTHYROIDISM
     Dosage: 50 UG, DAILY (1/D)
     Route: 048
     Dates: start: 20080301
  4. VITAMIN D [Concomitant]
     Indication: VITAMIN D DEFICIENCY
     Dosage: 8 DROPS, UNKNOWN
     Route: 048
     Dates: start: 20000101
  5. MAGNESIOCARD [Concomitant]
     Indication: MAGNESIUM DEFICIENCY
     Dosage: UNK, UNKNOWN
     Route: 048
     Dates: start: 20090101
  6. AXOTIDE [Concomitant]
     Indication: ASTHMA
     Dosage: 100 UG, DAILY (1/D)
     Route: 048
     Dates: start: 20060101

REACTIONS (4)
  - ABDOMINAL PAIN UPPER [None]
  - ALANINE AMINOTRANSFERASE INCREASED [None]
  - HEPATIC PAIN [None]
  - OEDEMA [None]
